FAERS Safety Report 19896440 (Version 1)
Quarter: 2021Q3

REPORT INFORMATION
  Report Type: Spontaneous
  Country: IN (occurrence: IN)
  Receive Date: 20210929
  Receipt Date: 20210929
  Transmission Date: 20211014
  Serious: Yes (Other)
  Sender: FDA-Public Use
  Company Number: IN-PFIZER INC-202101219674

PATIENT
  Age: 51 Year
  Sex: Female

DRUGS (2)
  1. METHYLPREDNISOLONE. [Suspect]
     Active Substance: METHYLPREDNISOLONE
  2. REMDESIVIR. [Suspect]
     Active Substance: REMDESIVIR

REACTIONS (2)
  - Sepsis [Unknown]
  - Drug ineffective [Unknown]
